FAERS Safety Report 13077976 (Version 1)
Quarter: 2017Q1

REPORT INFORMATION
  Report Type: Spontaneous
  Country: FR (occurrence: FR)
  Receive Date: 20170102
  Receipt Date: 20170102
  Transmission Date: 20170428
  Serious: Yes (Life-Threatening)
  Sender: FDA-Public Use
  Company Number: FR-ROCHE-1874047

PATIENT
  Age: 67 Year
  Sex: Male

DRUGS (9)
  1. VINCRISTINE [Concomitant]
     Active Substance: VINCRISTINE
     Route: 065
  2. CARBOPLATINE [Concomitant]
     Active Substance: CARBOPLATIN
  3. METHOTREXATE. [Concomitant]
     Active Substance: METHOTREXATE
  4. CYTARABINE. [Concomitant]
     Active Substance: CYTARABINE
  5. IPILIMUMAB [Concomitant]
     Active Substance: IPILIMUMAB
  6. ZELBORAF [Suspect]
     Active Substance: VEMURAFENIB
     Indication: MALIGNANT MELANOMA
     Route: 048
     Dates: start: 20110914, end: 201503
  7. DETICENE [Concomitant]
     Active Substance: DACARBAZINE
  8. FOTEMUSTINE [Concomitant]
     Active Substance: FOTEMUSTINE
  9. RITUXIMAB [Concomitant]
     Active Substance: RITUXIMAB
     Route: 065

REACTIONS (2)
  - Acute lymphocytic leukaemia [Not Recovered/Not Resolved]
  - Adenocarcinoma of colon [Recovered/Resolved with Sequelae]

NARRATIVE: CASE EVENT DATE: 201411
